FAERS Safety Report 8004171-X (Version None)
Quarter: 2011Q4

REPORT INFORMATION
  Report Type: 
  Country: None (occurrence: None)
  Receive Date: 20111223
  Receipt Date: 20111214
  Transmission Date: 20120403
  Serious: Yes (Hospitalization)
  Sender: FDA-Public Use
  Company Number: US-BIOGENIDEC-2011BI047835

PATIENT
  Age: 39 Year
  Sex: Female

DRUGS (1)
  1. TYSABRI [Suspect]
     Indication: MULTIPLE SCLEROSIS
     Route: 042
     Dates: start: 20081119

REACTIONS (8)
  - POST PROCEDURAL COMPLICATION [None]
  - PAIN [None]
  - VASCULAR CAUTERISATION [None]
  - BENIGN BILIARY NEOPLASM [None]
  - MUSCLE SPASMS [None]
  - BAND SENSATION [None]
  - MYCOTIC ALLERGY [None]
  - OEDEMA PERIPHERAL [None]
